FAERS Safety Report 20734324 (Version 1)
Quarter: 2022Q2

REPORT INFORMATION
  Report Type: Spontaneous
  Country: BE (occurrence: BE)
  Receive Date: 20220421
  Receipt Date: 20220421
  Transmission Date: 20220721
  Serious: Yes (Hospitalization)
  Sender: FDA-Public Use
  Company Number: BE-AstraZeneca-2021A709825

PATIENT
  Age: 75 Year
  Sex: Female

DRUGS (17)
  1. CARBOPLATIN [Suspect]
     Active Substance: CARBOPLATIN
     Indication: Endometrial cancer
     Dosage: AUC5 OR AUC6 EVERY THREE WEEKS
     Route: 042
     Dates: start: 20210819, end: 20210819
  2. CARBOPLATIN [Suspect]
     Active Substance: CARBOPLATIN
     Dosage: AUC5 OR AUC6 EVERY THREE WEEKS
     Route: 042
     Dates: start: 20210729, end: 20210729
  3. PACLITAXEL [Suspect]
     Active Substance: PACLITAXEL
     Indication: Endometrial cancer
     Route: 042
     Dates: start: 20210729, end: 20210729
  4. DURVALUMAB [Suspect]
     Active Substance: DURVALUMAB
     Indication: Endometrial cancer
     Route: 042
     Dates: start: 20210729, end: 20210729
  5. DURVALUMAB [Suspect]
     Active Substance: DURVALUMAB
     Route: 042
     Dates: start: 20210917, end: 20210917
  6. DURVALUMAB [Suspect]
     Active Substance: DURVALUMAB
     Route: 042
     Dates: start: 20210819, end: 20210819
  7. DURVALUMAB [Suspect]
     Active Substance: DURVALUMAB
     Route: 042
     Dates: start: 20211007, end: 20211007
  8. TINZAPARIN SODIUM [Concomitant]
     Active Substance: TINZAPARIN SODIUM
     Indication: Embolism
     Dosage: 7000 E, DAILY
     Route: 058
     Dates: start: 20210724, end: 20210930
  9. FENTANYL [Concomitant]
     Active Substance: FENTANYL
     Indication: Abdominal pain lower
     Route: 062
     Dates: start: 20210606
  10. BISOPROLOL [Concomitant]
     Active Substance: BISOPROLOL
     Indication: Hypertension
     Route: 048
     Dates: start: 2011
  11. OMEPRAZOLE [Concomitant]
     Active Substance: OMEPRAZOLE
     Indication: Gastrooesophageal reflux disease
     Route: 048
     Dates: start: 2019
  12. AMLODIPINE [Concomitant]
     Active Substance: AMLODIPINE BESYLATE
     Indication: Hypertension
     Route: 048
     Dates: start: 2011
  13. BUMETANIDE [Concomitant]
     Active Substance: BUMETANIDE
     Indication: Oedema peripheral
     Route: 048
     Dates: start: 202105
  14. ACETAMINOPHEN [Concomitant]
     Active Substance: ACETAMINOPHEN
     Indication: Back pain
     Route: 048
     Dates: start: 2011
  15. TRAZODONE [Concomitant]
     Active Substance: TRAZODONE HYDROCHLORIDE
     Indication: Pain
     Route: 048
     Dates: start: 20210605
  16. SOLIFENACIN SUCCINATE [Concomitant]
     Active Substance: SOLIFENACIN SUCCINATE
     Indication: Prophylaxis
     Route: 048
     Dates: start: 20210623
  17. POLYETHYLENE GLYCOL 3350\POTASSIUM CHLORIDE\SODIUM BICARBONATE\SODIUM [Concomitant]
     Active Substance: POLYETHYLENE GLYCOL 3350\POTASSIUM CHLORIDE\SODIUM BICARBONATE\SODIUM CHLORIDE
     Indication: Constipation
     Dosage: 1 SACHET, AS REQUIRED
     Route: 048
     Dates: start: 2019

REACTIONS (1)
  - Neutropenic sepsis [Recovered/Resolved]

NARRATIVE: CASE EVENT DATE: 20210827
